FAERS Safety Report 4319767-6 (Version None)
Quarter: 2004Q1

REPORT INFORMATION
  Report Type: 
  Country: None (occurrence: None)
  Receive Date: 20040319
  Receipt Date: 20040227
  Transmission Date: 20041129
  Serious: Yes (Hospitalization, Other)
  Sender: FDA-Public Use
  Company Number: JP-GLAXOSMITHKLINE-B0325117A

PATIENT
  Age: 54 Year
  Sex: Male
  Weight: 74 kg

DRUGS (7)
  1. ZANTAC [Suspect]
     Indication: GASTRIC ULCER
     Dosage: 100MG PER DAY
     Route: 042
     Dates: start: 20031125, end: 20031202
  2. PANALDINE [Suspect]
     Indication: VERTEBRAL ARTERY STENOSIS
     Dosage: 200MG PER DAY
     Route: 048
     Dates: start: 20031203, end: 20031223
  3. RADICUT [Concomitant]
     Indication: CEREBRAL INFARCTION
     Dosage: 60MG PER DAY
     Route: 042
     Dates: start: 20031125, end: 20031208
  4. IOMEPROL [Suspect]
     Indication: ANGIOGRAM CEREBRAL
     Dosage: 140ML PER DAY
     Route: 042
     Dates: start: 20031202, end: 20031202
  5. CEFEPIME DIHYDROCHLORIDE [Concomitant]
     Indication: PNEUMONIA
     Dosage: 2G PER DAY
     Route: 042
     Dates: start: 20031125, end: 20031129
  6. ASPIRIN [Concomitant]
     Indication: VERTEBRAL ARTERY STENOSIS
     Dosage: 100MG PER DAY
     Route: 048
     Dates: start: 20031203
  7. GLYCERIN [Concomitant]
     Indication: CEREBRAL INFARCTION
     Dosage: 400ML PER DAY
     Route: 042
     Dates: start: 20031125, end: 20031217

REACTIONS (8)
  - ALANINE AMINOTRANSFERASE INCREASED [None]
  - ANOREXIA [None]
  - ASPARTATE AMINOTRANSFERASE INCREASED [None]
  - BLOOD ALKALINE PHOSPHATASE INCREASED [None]
  - BLOOD BILIRUBIN INCREASED [None]
  - GAMMA-GLUTAMYLTRANSFERASE INCREASED [None]
  - JAUNDICE [None]
  - LIVER DISORDER [None]
